FAERS Safety Report 9619490 (Version 2)
Quarter: 2013Q4

REPORT INFORMATION
  Report Type: Report from Study
  Country: US (occurrence: US)
  Receive Date: 20131014
  Receipt Date: 20131028
  Transmission Date: 20140711
  Serious: Yes (Death)
  Sender: FDA-Public Use
  Company Number: US-ACTELION-A-NJ2013-89572

PATIENT
  Age: 61 Year
  Sex: Female

DRUGS (5)
  1. TRACLEER [Suspect]
     Indication: PULMONARY ARTERIAL HYPERTENSION
     Dosage: 125 MG, UNK
     Route: 048
     Dates: start: 200211
  2. COUMADIN [Concomitant]
  3. REVATIO [Concomitant]
  4. PREDNISONE [Concomitant]
  5. PLAQUENIL [Concomitant]
     Dosage: 125 MG, UNK

REACTIONS (3)
  - Respiratory failure [Fatal]
  - Pulmonary hypertension [Fatal]
  - Fibrosis [Fatal]
